FAERS Safety Report 7049216-9 (Version None)
Quarter: 2010Q4

REPORT INFORMATION
  Report Type: 
  Country: None (occurrence: None)
  Receive Date: 20101018
  Receipt Date: 20101011
  Transmission Date: 20110411
  Serious: Yes (Life-Threatening, Disabling)
  Sender: FDA-Public Use
  Company Number: US-GENZYME-FABR-1001368

PATIENT
  Sex: Male
  Weight: 45 kg

DRUGS (10)
  1. FABRAZYME [Suspect]
     Indication: FABRY'S DISEASE
     Dosage: 25 MG, Q2W
     Route: 042
     Dates: start: 20100401
  2. FABRAZYME [Suspect]
     Dosage: 45 MG, Q2W
     Route: 042
     Dates: start: 20030801
  3. PREDNISONE [Concomitant]
     Indication: PREMEDICATION
  4. TYLENOL W/ CODEINE [Concomitant]
     Indication: PREMEDICATION
  5. UNSPECIFIED MEDICATIONS RELATED TO DIALYSIS [Concomitant]
     Indication: DIALYSIS
  6. WARFARIN [Concomitant]
     Indication: PRODUCT USED FOR UNKNOWN INDICATION
  7. METOPROLOL SUCCINATE [Concomitant]
     Indication: PRODUCT USED FOR UNKNOWN INDICATION
  8. ZOCOR [Concomitant]
     Indication: PRODUCT USED FOR UNKNOWN INDICATION
  9. PHASLO [Concomitant]
     Indication: PRODUCT USED FOR UNKNOWN INDICATION
  10. PREDNISONE [Concomitant]
     Indication: PRODUCT USED FOR UNKNOWN INDICATION

REACTIONS (2)
  - ATRIAL FIBRILLATION [None]
  - LEFT VENTRICULAR HYPERTROPHY [None]
